FAERS Safety Report 10637590 (Version 1)
Quarter: 2014Q4

REPORT INFORMATION
  Report Type: Spontaneous
  Country: US (occurrence: None)
  Receive Date: 20141204
  Receipt Date: 20141204
  Transmission Date: 20150529
  Serious: Yes (Hospitalization)
  Sender: FDA-Public Use
  Company Number: None

PATIENT
  Age: 86 Year
  Sex: Male
  Weight: 64.3 kg

DRUGS (1)
  1. SALSALATE. [Suspect]
     Active Substance: SALSALATE
     Indication: PAIN
     Route: 048
     Dates: start: 20130919, end: 20141123

REACTIONS (8)
  - Faeces discoloured [None]
  - Ataxia [None]
  - Confusional state [None]
  - Intentional product misuse [None]
  - Drug level increased [None]
  - Epistaxis [None]
  - Intentional overdose [None]
  - Headache [None]

NARRATIVE: CASE EVENT DATE: 20141123
